FAERS Safety Report 18082454 (Version 1)
Quarter: 2020Q3

REPORT INFORMATION
  Report Type: Spontaneous
  Country: DE (occurrence: DE)
  Receive Date: 20200728
  Receipt Date: 20200728
  Transmission Date: 20201103
  Serious: Yes (Life-Threatening, Hospitalization, Disabling)
  Sender: FDA-Public Use
  Company Number: DE-009507513-2007DEU007884

PATIENT
  Age: 76 Year
  Sex: Female
  Weight: 60 kg

DRUGS (1)
  1. KEYTRUDA [Suspect]
     Active Substance: PEMBROLIZUMAB
     Indication: SQUAMOUS CELL CARCINOMA OF THE TONGUE
     Dosage: 200 MILLIGRAM
     Route: 042
     Dates: start: 20200625, end: 20200625

REACTIONS (1)
  - Tracheal squamous cell metaplasia [Recovered/Resolved with Sequelae]

NARRATIVE: CASE EVENT DATE: 20200711
